FAERS Safety Report 13444560 (Version 1)
Quarter: 2017Q2

REPORT INFORMATION
  Report Type: Spontaneous
  Country: US (occurrence: US)
  Receive Date: 20170414
  Receipt Date: 20170414
  Transmission Date: 20170830
  Serious: No
  Sender: FDA-Public Use
  Company Number: US-NOVOPROD-529390

PATIENT
  Age: 61 Year
  Sex: Female

DRUGS (1)
  1. TRESIBA [Suspect]
     Active Substance: INSULIN DEGLUDEC
     Indication: TYPE 2 DIABETES MELLITUS
     Route: 058
     Dates: start: 201611, end: 20170124

REACTIONS (6)
  - Insomnia [Recovered/Resolved]
  - Pain in extremity [Recovered/Resolved]
  - Scratch [Recovered/Resolved]
  - Blood glucose increased [Not Recovered/Not Resolved]
  - Pruritus [Recovered/Resolved]
  - Blood glucose decreased [Unknown]

NARRATIVE: CASE EVENT DATE: 201611
